FAERS Safety Report 10127227 (Version 2)
Quarter: 2015Q1

REPORT INFORMATION
  Report Type: Other
  Country: US (occurrence: US)
  Receive Date: 20140428
  Receipt Date: 20150225
  Transmission Date: 20150720
  Serious: Yes (Hospitalization, Other)
  Sender: FDA-Public Use
  Company Number: US-GSKPPD-2014GSK028458

PATIENT
  Age: 65 Year
  Sex: Male

DRUGS (7)
  1. COUMADIN [Concomitant]
     Active Substance: WARFARIN SODIUM
  2. PLAVIX [Concomitant]
     Active Substance: CLOPIDOGREL BISULFATE
  3. LOPRESSOR [Concomitant]
     Active Substance: METOPROLOL TARTRATE
  4. HYTRIN [Concomitant]
     Active Substance: TERAZOSIN HYDROCHLORIDE
  5. ASPIRIN. [Concomitant]
     Active Substance: ASPIRIN
  6. LISINOPRIL. [Concomitant]
     Active Substance: LISINOPRIL
  7. AVANDIA [Suspect]
     Active Substance: ROSIGLITAZONE MALEATE
     Indication: DIABETES MELLITUS
     Dosage: AVANDIA WAS NOT LISTED AMONG THE PATIENTS RECORDS REVIEWED.
     Route: 048

REACTIONS (1)
  - Acute myocardial infarction [Recovered/Resolved]

NARRATIVE: CASE EVENT DATE: 20100430
